FAERS Safety Report 8224586-4 (Version None)
Quarter: 2012Q1

REPORT INFORMATION
  Report Type: 
  Country: None (occurrence: None)
  Receive Date: 20120321
  Receipt Date: 20120309
  Transmission Date: 20120608
  Serious: Yes (Hospitalization, Other)
  Sender: FDA-Public Use
  Company Number: CA-ELI_LILLY_AND_COMPANY-CA201203002781

PATIENT
  Sex: Female
  Weight: 74 kg

DRUGS (4)
  1. CYMBALTA [Suspect]
     Indication: DEPRESSION
     Dosage: 30 MG, QD
  2. ACETAMINOPHEN [Concomitant]
     Dosage: 500 MG, PRN
     Dates: start: 20110823
  3. CYMBALTA [Suspect]
     Dosage: 810 MG, OTHER
  4. ORTHO EVRA [Concomitant]
     Indication: CONTRACEPTION
     Dosage: UNK, WEEKLY (1/W)
     Route: 061

REACTIONS (5)
  - FATIGUE [None]
  - INFLUENZA LIKE ILLNESS [None]
  - SUICIDE ATTEMPT [None]
  - HEPATITIS C [None]
  - OVERDOSE [None]
